FAERS Safety Report 26009568 (Version 1)
Quarter: 2025Q4

REPORT INFORMATION
  Report Type: Report from Study
  Country: US (occurrence: None)
  Receive Date: 20251107
  Receipt Date: 20251107
  Transmission Date: 20260117
  Serious: Yes (Hospitalization)
  Sender: UCB
  Company Number: US-UCBSA-2025069887

PATIENT

DRUGS (1)
  1. LEVETIRACETAM [Suspect]
     Active Substance: LEVETIRACETAM
     Indication: Seizure
     Dosage: 1000 MILLIGRAM -TAKE 1 TABLET (1,000 MG TOTAL) BY  MOUTH 3 (THREE) TIMES A DAY

REACTIONS (2)
  - Dehydration [Unknown]
  - Inappropriate schedule of product administration [Unknown]
